FAERS Safety Report 6301115-3 (Version None)
Quarter: 2009Q3

REPORT INFORMATION
  Report Type: 
  Country: None (occurrence: None)
  Receive Date: 20090807
  Receipt Date: 20090731
  Transmission Date: 20100115
  Serious: Yes (Hospitalization)
  Sender: FDA-Public Use
  Company Number: PHEH2009US08771

PATIENT
  Sex: Male

DRUGS (4)
  1. EXJADE [Suspect]
     Dosage: UNK
     Dates: start: 20090323, end: 20090701
  2. EXJADE [Suspect]
     Dosage: 1500 MG, QD
     Dates: start: 20090701
  3. LOVENOX [Concomitant]
  4. VANCOMYCIN [Concomitant]

REACTIONS (6)
  - CHILLS [None]
  - KNEE ARTHROPLASTY [None]
  - LOCALISED INFECTION [None]
  - PYREXIA [None]
  - SEPSIS [None]
  - SERUM FERRITIN INCREASED [None]
